FAERS Safety Report 6643754-6 (Version None)
Quarter: 2010Q1

REPORT INFORMATION
  Report Type: 
  Country: None (occurrence: None)
  Receive Date: 20100322
  Receipt Date: 20100316
  Transmission Date: 20100710
  Serious: Yes (Hospitalization)
  Sender: FDA-Public Use
  Company Number: 2005BI022363

PATIENT
  Age: 48 Year
  Sex: Female

DRUGS (3)
  1. AVONEX [Suspect]
     Indication: MULTIPLE SCLEROSIS
     Route: 030
     Dates: start: 20000101, end: 20000430
  2. AVONEX [Suspect]
     Route: 030
     Dates: end: 20030101
  3. AVONEX [Suspect]
     Route: 030
     Dates: start: 20051201, end: 20051208

REACTIONS (3)
  - COLONIC OBSTRUCTION [None]
  - IRRITABILITY [None]
  - WEIGHT DECREASED [None]
